FAERS Safety Report 11970756 (Version 1)
Quarter: 2016Q1

REPORT INFORMATION
  Report Type: Spontaneous
  Country: US (occurrence: None)
  Receive Date: 20160126
  Receipt Date: 20160126
  Transmission Date: 20160526
  Serious: Yes (Hospitalization, Other)
  Sender: FDA-Public Use
  Company Number: None

PATIENT
  Age: 50 Year
  Sex: Male
  Weight: 92.6 kg

DRUGS (1)
  1. RIVAROXABAN [Suspect]
     Active Substance: RIVAROXABAN
     Indication: DEEP VEIN THROMBOSIS
     Route: 048
     Dates: start: 20151001, end: 20151022

REACTIONS (4)
  - Colon cancer [None]
  - Large intestinal obstruction [None]
  - Rectal polyp [None]
  - Rectal haemorrhage [None]

NARRATIVE: CASE EVENT DATE: 20151022
